FAERS Safety Report 22012157 (Version 1)
Quarter: 2023Q1

REPORT INFORMATION
  Report Type: Spontaneous
  Country: DE (occurrence: DE)
  Receive Date: 20230220
  Receipt Date: 20230220
  Transmission Date: 20230418
  Serious: Yes (Other)
  Sender: FDA-Public Use
  Company Number: DE-PFIZER INC-202300071228

PATIENT
  Age: 62 Year
  Sex: Male

DRUGS (2)
  1. XELJANZ [Suspect]
     Active Substance: TOFACITINIB CITRATE
     Dosage: 5 MG, 2X/DAY
  2. CORTISONE [Concomitant]
     Active Substance: CORTISONE

REACTIONS (6)
  - Cardiomyopathy [Unknown]
  - Cardiac failure [Unknown]
  - Septic shock [Unknown]
  - Pneumonia [Unknown]
  - Acute kidney injury [Unknown]
  - Nicotine dependence [Unknown]
